FAERS Safety Report 8782709 (Version 2)
Quarter: 2012Q4

REPORT INFORMATION
  Report Type: 
  Country: JP (occurrence: JP)
  Receive Date: 20120913
  Receipt Date: 20121109
  Transmission Date: 20130627
  Serious: Yes (Death)
  Sender: FDA-Public Use
  Company Number: JP-ROCHE-1115413

PATIENT
  Age: 78 Year
  Sex: Male

DRUGS (3)
  1. AVASTIN [Suspect]
     Indication: RECTAL CANCER
     Route: 041
     Dates: start: 20100809, end: 20101014
  2. XELODA [Suspect]
     Indication: RECTAL CANCER
     Dosage: 2 weeks administration followed by 1 week rest
     Route: 048
     Dates: start: 20100809, end: 20101014
  3. ELPLAT [Suspect]
     Indication: RECTAL CANCER
     Route: 041
     Dates: start: 20100809, end: 20101014

REACTIONS (6)
  - Rectal cancer [Fatal]
  - Neuropathy peripheral [Recovered/Resolved]
  - Decreased appetite [Recovered/Resolved]
  - Malaise [Recovered/Resolved]
  - Pain [Unknown]
  - Weight decreased [Unknown]
